FAERS Safety Report 9279191 (Version 2)
Quarter: 2013Q2

REPORT INFORMATION
  Report Type: Spontaneous
  Country: IT (occurrence: IT)
  Receive Date: 20130508
  Receipt Date: 20130509
  Transmission Date: 20140414
  Serious: Yes (Other)
  Sender: FDA-Public Use
  Company Number: IT-UCBSA-084557

PATIENT
  Age: 54 Year
  Sex: Male

DRUGS (1)
  1. KEPPRA [Suspect]
     Indication: INSOMNIA
     Dosage: DOSE PER INTAKE : 50 DF
     Route: 048
     Dates: start: 20130413, end: 20130413

REACTIONS (4)
  - Drug abuse [Unknown]
  - Drop attacks [Recovering/Resolving]
  - Balance disorder [Recovering/Resolving]
  - Overdose [Unknown]
